FAERS Safety Report 7528358-5 (Version None)
Quarter: 2011Q2

REPORT INFORMATION
  Report Type: 
  Country: None (occurrence: None)
  Receive Date: 20110607
  Receipt Date: 20101006
  Transmission Date: 20111010
  Serious: No
  Sender: FDA-Public Use
  Company Number: US-ASTRAZENECA-2010SE48411

PATIENT
  Sex: Female

DRUGS (3)
  1. PRILOSEC OTC [Suspect]
     Route: 048
  2. VITAMINS [Concomitant]
     Dosage: UNKNOWN
  3. OSTEO MEDICATIONS [Concomitant]
     Dosage: UNKNOWN

REACTIONS (1)
  - BLOOD IRON INCREASED [None]
